FAERS Safety Report 9155018 (Version 2)
Quarter: 2013Q1

REPORT INFORMATION
  Report Type: Spontaneous
  Country: DE (occurrence: DE)
  Receive Date: 20130311
  Receipt Date: 20130327
  Transmission Date: 20140127
  Serious: Yes (Hospitalization)
  Sender: FDA-Public Use
  Company Number: PHHY2013DE023170

PATIENT
  Sex: Female

DRUGS (1)
  1. COMTESS [Suspect]
     Indication: PARKINSON^S DISEASE
     Dosage: 200 MG, QID
     Route: 048

REACTIONS (2)
  - Retching [Recovered/Resolved]
  - Nausea [Recovered/Resolved]
